FAERS Safety Report 5003253-4 (Version None)
Quarter: 2006Q1

REPORT INFORMATION
  Report Type: 
  Country: None (occurrence: None)
  Receive Date: 20060317
  Receipt Date: 20060213
  Transmission Date: 20060701
  Serious: Yes (Hospitalization, Disabling)
  Sender: FDA-Public Use
  Company Number: US-JNJFOC-20051104590

PATIENT
  Age: 20 Year
  Sex: Female
  Weight: 92.9874 kg

DRUGS (1)
  1. ORTHO EVRA [Suspect]
     Indication: DYSFUNCTIONAL UTERINE BLEEDING
     Dosage: 1 DOSE(S), 3 IN 4 WEEK
     Dates: start: 20050701, end: 20051101

REACTIONS (2)
  - DEEP VEIN THROMBOSIS [None]
  - OFF LABEL USE [None]
